FAERS Safety Report 8523241-0 (Version None)
Quarter: 2012Q3

REPORT INFORMATION
  Report Type: 
  Country: None (occurrence: None)
  Receive Date: 20120720
  Receipt Date: 20110613
  Transmission Date: 20120928
  Serious: Yes (Hospitalization, Other)
  Sender: FDA-Public Use
  Company Number: US-BAYER-201013545NA

PATIENT
  Age: 21 Year
  Sex: Female
  Weight: 107 kg

DRUGS (16)
  1. IBUPROFEN [Concomitant]
     Indication: PAIN
     Dosage: AS NEEDED
  2. SODIUM CITRATE [Concomitant]
  3. ANTICONVULSIVE [Concomitant]
  4. ACE INHIBITOR NOS [Concomitant]
  5. ANTIBIOTICS [Concomitant]
  6. LOESTRIN 1.5/30 [Concomitant]
     Indication: CONTRACEPTION
  7. MYLANTA [CALCIUM CARBONATE] [Concomitant]
  8. YASMIN [Suspect]
     Route: 048
     Dates: start: 20041123, end: 20070308
  9. ANGIOTENSIN II ANTAGONISTS [Concomitant]
  10. POTASSIUM-SPARING AGENTS [Concomitant]
  11. DOCUSATE SODIUM [Concomitant]
     Indication: CONSTIPATION
     Dosage: AS NEEDED
  12. ALDOSTERONE ANTAGONISTS [Concomitant]
  13. NSAID'S [Concomitant]
  14. ORTHO MICRONOR-28 [Concomitant]
     Dates: start: 20060401
  15. ANTITHROMBOTIC AGENTS [Concomitant]
  16. MULTI-VITAMINS [Concomitant]
     Dates: start: 20060412

REACTIONS (7)
  - VOMITING [None]
  - ABDOMINAL PAIN UPPER [None]
  - BILIARY COLIC [None]
  - CHOLECYSTECTOMY [None]
  - NAUSEA [None]
  - CHOLELITHIASIS [None]
  - PYREXIA [None]
